FAERS Safety Report 9231917 (Version 1)
Quarter: 2013Q2

REPORT INFORMATION
  Report Type: Spontaneous
  Country: FR (occurrence: FR)
  Receive Date: 20130415
  Receipt Date: 20130415
  Transmission Date: 20140414
  Serious: Yes (Hospitalization)
  Sender: FDA-Public Use
  Company Number: FR-PFIZER INC-2013110971

PATIENT
  Age: 43 Year
  Sex: Female

DRUGS (1)
  1. MINIDRIL [Suspect]
     Indication: CONTRACEPTION
     Dosage: 1 DF (150UG, 30UG), 1X/DAY
     Route: 048
     Dates: end: 20120418

REACTIONS (3)
  - Cerebral infarction [Recovered/Resolved]
  - Hemiplegia [Recovered/Resolved]
  - Paraesthesia [Recovered/Resolved]
